FAERS Safety Report 21097487 (Version 1)
Quarter: 2022Q3

REPORT INFORMATION
  Report Type: Report from Study
  Country: DO (occurrence: DO)
  Receive Date: 20220719
  Receipt Date: 20220719
  Transmission Date: 20221026
  Serious: Yes (Other)
  Sender: FDA-Public Use
  Company Number: DO-NOVARTISPH-NVSC2022DO160440

PATIENT
  Sex: Female

DRUGS (1)
  1. FEMARA [Suspect]
     Active Substance: LETROZOLE
     Indication: Hormone level abnormal
     Dosage: 2.5 MG, QD
     Route: 048
     Dates: start: 202108

REACTIONS (2)
  - Metastases to lung [Unknown]
  - Product use in unapproved indication [Unknown]
